FAERS Safety Report 9677976 (Version 1)
Quarter: 2013Q4

REPORT INFORMATION
  Report Type: Spontaneous
  Country: DE (occurrence: DE)
  Receive Date: 20131108
  Receipt Date: 20131108
  Transmission Date: 20140711
  Serious: Yes (Other)
  Sender: FDA-Public Use
  Company Number: DE-BAYER-2013-134959

PATIENT
  Age: 46 Year
  Sex: Female

DRUGS (3)
  1. MIRENA [Suspect]
     Dosage: 20 MCG/24HR, CONT, FIRST MIRENA
     Route: 015
     Dates: start: 2003
  2. MIRENA [Suspect]
     Dosage: 20 MCG/24HR, CONT, SECOND MIRENA
     Route: 015
     Dates: end: 201308
  3. MIRENA [Suspect]
     Dosage: 20 MCG/24HR, CONT, THIRD MIRENA
     Route: 015
     Dates: start: 201308

REACTIONS (1)
  - Breast cancer in situ [None]
